FAERS Safety Report 5568008-0 (Version None)
Quarter: 2007Q4

REPORT INFORMATION
  Report Type: 
  Country: None (occurrence: None)
  Receive Date: 20071220
  Receipt Date: 20071211
  Transmission Date: 20080405
  Serious: Yes (Life-Threatening, Hospitalization)
  Sender: FDA-Public Use
  Company Number: JP-JNJFOC-20071003347

PATIENT
  Sex: Female
  Weight: 53 kg

DRUGS (19)
  1. REMICADE [Suspect]
     Route: 042
  2. REMICADE [Suspect]
     Route: 042
  3. REMICADE [Suspect]
     Route: 042
  4. REMICADE [Suspect]
     Route: 042
  5. REMICADE [Suspect]
     Route: 042
  6. REMICADE [Suspect]
     Route: 042
  7. REMICADE [Suspect]
     Route: 042
  8. REMICADE [Suspect]
     Route: 042
  9. REMICADE [Suspect]
     Route: 042
  10. REMICADE [Suspect]
     Route: 042
  11. REMICADE [Suspect]
     Indication: RHEUMATOID ARTHRITIS
     Route: 042
  12. RHEUMATREX [Suspect]
     Indication: RHEUMATOID ARTHRITIS
     Route: 048
  13. CALONAL [Concomitant]
     Indication: PREMEDICATION
     Route: 048
  14. FOLIAMIN [Concomitant]
     Indication: PROPHYLAXIS
     Route: 048
  15. CLIMAGEN [Concomitant]
     Indication: GASTRIC ULCER
     Route: 048
  16. LOXOPROFEN [Concomitant]
     Indication: RHEUMATOID ARTHRITIS
     Route: 048
  17. CYTOTEC [Concomitant]
     Indication: GASTROINTESTINAL ULCER
     Route: 048
  18. CIMETIPAREL [Concomitant]
     Route: 048
  19. POLARAMINE [Concomitant]
     Indication: PREMEDICATION

REACTIONS (7)
  - CHILLS [None]
  - HYPERSENSITIVITY [None]
  - INFUSION RELATED REACTION [None]
  - NODAL MARGINAL ZONE B-CELL LYMPHOMA [None]
  - NON-HODGKIN'S LYMPHOMA STAGE II [None]
  - PYREXIA [None]
  - THERAPEUTIC RESPONSE DECREASED [None]
